FAERS Safety Report 14724212 (Version 2)
Quarter: 2018Q2

REPORT INFORMATION
  Report Type: Report from Study
  Country: US (occurrence: US)
  Receive Date: 20180405
  Receipt Date: 20180529
  Transmission Date: 20180711
  Serious: Yes (Other)
  Sender: FDA-Public Use
  Company Number: US-SHIRE-US201812763

PATIENT
  Age: 34 Year
  Sex: Male

DRUGS (3)
  1. GATTEX [Suspect]
     Active Substance: TEDUGLUTIDE\WATER
     Indication: CROHN^S DISEASE
     Dosage: 0.38 ML, 1X/DAY:QD
     Route: 058
     Dates: start: 20180207
  2. GATTEX [Suspect]
     Active Substance: TEDUGLUTIDE\WATER
     Indication: SHORT-BOWEL SYNDROME
     Dosage: 3.8 MG, 1X/DAY:QD
     Route: 058
     Dates: start: 20180207, end: 20180501
  3. GATTEX [Suspect]
     Active Substance: TEDUGLUTIDE\WATER
     Indication: OFF LABEL USE

REACTIONS (11)
  - Abdominal pain upper [Unknown]
  - Faeces hard [Unknown]
  - Off label use [Unknown]
  - Nausea [Unknown]
  - Haemorrhoids [Unknown]
  - Rectal haemorrhage [Unknown]
  - Rectal fissure [Unknown]
  - Anorectal discomfort [Unknown]
  - Weight decreased [Unknown]
  - Headache [Recovered/Resolved]
  - Constipation [Unknown]

NARRATIVE: CASE EVENT DATE: 20180207
